FAERS Safety Report 5118666-X (Version None)
Quarter: 2006Q4

REPORT INFORMATION
  Report Type: 
  Country: None (occurrence: None)
  Receive Date: 20061002
  Receipt Date: 20060927
  Transmission Date: 20070319
  Serious: Yes (Other)
  Sender: FDA-Public Use
  Company Number: US-MERCK-0609USA06818

PATIENT
  Age: 85 Year
  Sex: Male
  Weight: 105 kg

DRUGS (6)
  1. COSOPT [Suspect]
     Indication: GLAUCOMA
     Route: 047
  2. LUMIGAN [Suspect]
     Indication: GLAUCOMA
     Route: 065
  3. ALEVE [Suspect]
     Indication: ARTHRITIS
     Route: 048
     Dates: start: 20050101, end: 20060726
  4. ALEVE [Suspect]
     Route: 048
  5. ASPIRIN [Concomitant]
     Indication: THROMBOSIS
     Route: 065
  6. ZIAC [Concomitant]
     Route: 065

REACTIONS (7)
  - ANOREXIA [None]
  - APHTHOUS STOMATITIS [None]
  - BLOOD ZINC DECREASED [None]
  - BRAIN MASS [None]
  - DYSGEUSIA [None]
  - SINUSITIS [None]
  - WEIGHT DECREASED [None]
